FAERS Safety Report 4962013-0 (Version None)
Quarter: 2006Q2

REPORT INFORMATION
  Report Type: 
  Country: None (occurrence: None)
  Receive Date: 20060404
  Receipt Date: 20051205
  Transmission Date: 20061013
  Serious: Yes (Hospitalization)
  Sender: FDA-Public Use
  Company Number: US-MERCK-0512USA00663

PATIENT
  Age: 70 Year
  Sex: Male
  Weight: 98 kg

DRUGS (10)
  1. VIOXX [Suspect]
     Indication: SPONDYLITIS
     Route: 048
     Dates: start: 20011031, end: 20041004
  2. SYNTHROID [Concomitant]
     Indication: HYPOTHYROIDISM
     Route: 065
  3. ATIVAN [Concomitant]
     Indication: ANXIETY
     Route: 065
     Dates: start: 19970101
  4. AVALIDE [Concomitant]
     Indication: BLOOD PRESSURE ABNORMAL
     Route: 065
     Dates: start: 20031009
  5. TENORMIN [Concomitant]
     Route: 065
     Dates: start: 20030929
  6. DETROL LA [Concomitant]
     Indication: INCONTINENCE
     Route: 065
  7. ATACAND [Concomitant]
     Route: 065
  8. ONE-A-DAY ESSENTIAL VITAMINS [Concomitant]
     Route: 065
     Dates: start: 20031101
  9. ASPIRIN [Concomitant]
     Route: 065
     Dates: end: 20031123
  10. ASPIRIN [Concomitant]
     Route: 065
     Dates: start: 20031123

REACTIONS (5)
  - ANXIETY [None]
  - BASAL CELL CARCINOMA [None]
  - BLOOD URINE PRESENT [None]
  - CEREBROVASCULAR ACCIDENT [None]
  - SOCIAL PHOBIA [None]
